FAERS Safety Report 7419822-8 (Version None)
Quarter: 2011Q2

REPORT INFORMATION
  Report Type: 
  Country: None (occurrence: None)
  Receive Date: 20110413
  Receipt Date: 20110413
  Transmission Date: 20111010
  Serious: Yes (Other)
  Sender: FDA-Public Use
  Company Number: None

PATIENT
  Age: 45 Year
  Sex: Male
  Weight: 81.6475 kg

DRUGS (6)
  1. HYDROCHLOROTHIAZIDE [Concomitant]
  2. LEXAPRO [Concomitant]
  3. VALSARTAN [Concomitant]
  4. MINOCIN [Concomitant]
  5. PRILOSEC [Concomitant]
  6. GABAPENTIN [Suspect]
     Indication: NEURALGIA
     Dosage: 200 MG AT BEDTIME PO
     Route: 048
     Dates: start: 20110401, end: 20110411

REACTIONS (3)
  - FATIGUE [None]
  - SUICIDAL IDEATION [None]
  - DEPRESSION [None]
